FAERS Safety Report 8001896-7 (Version None)
Quarter: 2011Q4

REPORT INFORMATION
  Report Type: 
  Country: None (occurrence: None)
  Receive Date: 20111219
  Receipt Date: 20111206
  Transmission Date: 20120403
  Serious: Yes (Hospitalization, Other)
  Sender: FDA-Public Use
  Company Number: 2011P1013922

PATIENT
  Age: 10 Year
  Sex: Male

DRUGS (1)
  1. OXCARBAZEPINE [Suspect]
     Indication: EPILEPSY
     Dosage: 500 MG;BID;PO
     Route: 048

REACTIONS (14)
  - PHARYNGEAL ERYTHEMA [None]
  - SWELLING [None]
  - PLATELET COUNT DECREASED [None]
  - PYREXIA [None]
  - RENAL DISORDER [None]
  - HYPOKALAEMIA [None]
  - PETECHIAE [None]
  - LYMPHADENOPATHY [None]
  - RED BLOOD CELLS URINE POSITIVE [None]
  - C-REACTIVE PROTEIN INCREASED [None]
  - TONSILLAR DISORDER [None]
  - BLOOD UREA INCREASED [None]
  - BLOOD IMMUNOGLOBULIN E INCREASED [None]
  - LEUKOPENIA [None]
